FAERS Safety Report 19721233 (Version 2)
Quarter: 2021Q3

REPORT INFORMATION
  Report Type: Spontaneous
  Country: IT (occurrence: IT)
  Receive Date: 20210819
  Receipt Date: 20210914
  Transmission Date: 20211014
  Serious: Yes (Death)
  Sender: FDA-Public Use
  Company Number: IT-TEVA-2021-IT-1942013

PATIENT
  Age: 93 Year
  Sex: Male
  Weight: 80 kg

DRUGS (3)
  1. QUETIAPINE. [Suspect]
     Active Substance: QUETIAPINE
     Route: 065
  2. CARDIOASPIRIN [Concomitant]
     Active Substance: ASPIRIN
  3. COMIRNATY [Suspect]
     Active Substance: TOZINAMERAN
     Indication: COVID-19 IMMUNISATION
     Route: 030
     Dates: start: 20210623, end: 20210623

REACTIONS (4)
  - Tachypnoea [Fatal]
  - Metabolic acidosis [Fatal]
  - Pulmonary embolism [Fatal]
  - Hypoxia [Fatal]

NARRATIVE: CASE EVENT DATE: 20210626
